FAERS Safety Report 21723951 (Version 2)
Quarter: 2023Q1

REPORT INFORMATION
  Report Type: Report from Study
  Country: US (occurrence: US)
  Receive Date: 20221213
  Receipt Date: 20230314
  Transmission Date: 20230417
  Serious: Yes (Hospitalization)
  Sender: FDA-Public Use
  Company Number: US-PFIZER INC-PV202200120193

PATIENT
  Age: 17 Year
  Sex: Male
  Weight: 98.7 kg

DRUGS (19)
  1. CYTARABINE [Suspect]
     Active Substance: CYTARABINE
     Indication: Acute lymphocytic leukaemia
     Dosage: 160 MG, (MG/M2) QD FOR 4 DAYS
     Route: 042
     Dates: start: 20211220
  2. DOXORUBICIN HYDROCHLORIDE [Suspect]
     Active Substance: DOXORUBICIN HYDROCHLORIDE
     Indication: Acute lymphocytic leukaemia
     Dosage: 54 MG, ONCE A WEEK
     Route: 042
     Dates: start: 20220504
  3. VINCRISTINE SULFATE [Suspect]
     Active Substance: VINCRISTINE SULFATE
     Indication: Acute lymphocytic leukaemia
     Dosage: 2 MG, ONCE
     Route: 042
     Dates: start: 20220103
  4. METHOTREXATE SODIUM [Suspect]
     Active Substance: METHOTREXATE SODIUM
     Indication: Acute lymphocytic leukaemia
     Dosage: 15 MG, ONCE
     Route: 037
     Dates: start: 20211220, end: 20221130
  5. METHOTREXATE SODIUM [Suspect]
     Active Substance: METHOTREXATE SODIUM
     Dosage: 15 MG, ONCE
     Route: 037
     Dates: start: 20221207
  6. RUXOLITINIB [Suspect]
     Active Substance: RUXOLITINIB
     Indication: Acute lymphocytic leukaemia
     Dosage: 50 MG, 2X/DAY, TABLET
     Route: 048
     Dates: start: 20211220, end: 20221130
  7. RUXOLITINIB [Suspect]
     Active Substance: RUXOLITINIB
     Dosage: 100 MG, 2X/DAY, TABLET
     Route: 048
     Dates: start: 20221207
  8. CYCLOPHOSPHAMIDE [Suspect]
     Active Substance: CYCLOPHOSPHAMIDE
     Indication: Acute lymphocytic leukaemia
     Dosage: 2140 MG, 30-60 MIN ONCE
     Route: 042
     Dates: start: 20211220
  9. MERCAPTOPURINE [Suspect]
     Active Substance: MERCAPTOPURINE
     Indication: Acute lymphocytic leukaemia
     Dosage: 53.5 MG, 1X/DAY, TABLET
     Route: 048
     Dates: start: 20211220, end: 20221129
  10. MERCAPTOPURINE [Suspect]
     Active Substance: MERCAPTOPURINE
     Dosage: 53.5 MG, 1X/DAY, TABLET
     Route: 048
     Dates: start: 20221207
  11. PEGASPARGASE [Suspect]
     Active Substance: PEGASPARGASE
     Indication: Acute lymphocytic leukaemia
     Dosage: 5125 IU, (IU/M2) SINGLE
     Route: 042
     Dates: start: 20220103
  12. METHOTREXATE SODIUM [Suspect]
     Active Substance: METHOTREXATE SODIUM
     Indication: Acute lymphocytic leukaemia
     Dosage: 43.75 MG, 1XWEEK, TABLET
     Route: 048
     Dates: start: 20221109, end: 20221130
  13. METHOTREXATE SODIUM [Suspect]
     Active Substance: METHOTREXATE SODIUM
     Dosage: 43.75 MG, 1XWEEK, TABLET
     Route: 048
     Dates: start: 20221207
  14. METHOTREXATE SODIUM [Suspect]
     Active Substance: METHOTREXATE SODIUM
     Indication: Acute lymphocytic leukaemia
     Dosage: HIGH DOSE 10600 MG 2 DAYS, TABLET
     Route: 048
     Dates: start: 20220301
  15. LEUCOVORIN CALCIUM [Suspect]
     Active Substance: LEUCOVORIN CALCIUM
     Indication: Acute lymphocytic leukaemia
     Dosage: 32 MG 2-4 DAYS, TABLETS
     Route: 048
     Dates: start: 20220303
  16. DEXAMETHASONE [Suspect]
     Active Substance: DEXAMETHASONE
     Indication: Acute lymphocytic leukaemia
     Dosage: 10.75 MG, 2X/DAY, TABLET
     Route: 048
     Dates: start: 20220504
  17. ASPARAGINASE [Suspect]
     Active Substance: ASPARAGINASE
     Indication: Acute lymphocytic leukaemia
     Dosage: 108 MG, ONCE 2 DAYS, INJECTION
     Route: 042
     Dates: start: 20220131
  18. PREDNISONE [Suspect]
     Active Substance: PREDNISONE
     Indication: Acute lymphocytic leukaemia
     Dosage: 42.5 MG, 2X/DAY, TABLET
     Route: 048
     Dates: start: 20221102
  19. ACETAMINOPHEN [Concomitant]
     Active Substance: ACETAMINOPHEN
     Dosage: UNK
     Dates: start: 20221127

REACTIONS (1)
  - Febrile neutropenia [Recovered/Resolved]

NARRATIVE: CASE EVENT DATE: 20221128
